FAERS Safety Report 20120722 (Version 3)
Quarter: 2021Q4

REPORT INFORMATION
  Report Type: Spontaneous
  Country: US (occurrence: US)
  Receive Date: 20211126
  Receipt Date: 20211223
  Transmission Date: 20220304
  Serious: Yes (Other)
  Sender: FDA-Public Use
  Company Number: US-SA-SAC20211124001191

PATIENT
  Sex: Female

DRUGS (3)
  1. AUBAGIO [Suspect]
     Active Substance: TERIFLUNOMIDE
     Indication: Multiple sclerosis
     Dosage: 14 MG, QD
     Route: 048
     Dates: start: 20211015
  2. FLOVENT HFA [Concomitant]
     Active Substance: FLUTICASONE PROPIONATE
  3. GABAPENTIN [Concomitant]
     Active Substance: GABAPENTIN

REACTIONS (5)
  - Optic neuritis [Unknown]
  - Visual impairment [Unknown]
  - Illness [Unknown]
  - Depressed mood [Unknown]
  - Product dose omission issue [Unknown]

NARRATIVE: CASE EVENT DATE: 20210101
